FAERS Safety Report 9730826 (Version 3)
Quarter: 2014Q2

REPORT INFORMATION
  Report Type: Spontaneous
  Country: CA (occurrence: CA)
  Receive Date: 20131205
  Receipt Date: 20140428
  Transmission Date: 20141212
  Serious: Yes (Other)
  Sender: FDA-Public Use
  Company Number: CA-ROCHE-1313092

PATIENT
  Sex: Female
  Weight: 107 kg

DRUGS (10)
  1. XOLAIR [Suspect]
     Indication: ASTHMA
     Route: 058
     Dates: start: 20120323
  2. XOLAIR [Suspect]
     Route: 058
     Dates: start: 20120406
  3. XOLAIR [Suspect]
     Route: 058
     Dates: start: 20120907
  4. XOLAIR [Suspect]
     Route: 058
     Dates: start: 20140320
  5. XOLAIR [Suspect]
     Route: 058
     Dates: start: 20140417
  6. NASONEX [Concomitant]
  7. BRICANYL [Concomitant]
  8. SINGULAIR [Concomitant]
  9. REACTINE (CANADA) [Concomitant]
  10. EPIPEN [Concomitant]

REACTIONS (6)
  - Gestational diabetes [Unknown]
  - Asthma [Unknown]
  - Fatigue [Unknown]
  - Maternal exposure during pregnancy [Unknown]
  - Migraine [Unknown]
  - Weight decreased [Unknown]
